FAERS Safety Report 7675623-7 (Version None)
Quarter: 2011Q3

REPORT INFORMATION
  Report Type: 
  Country: None (occurrence: None)
  Receive Date: 20110810
  Receipt Date: 20110802
  Transmission Date: 20111222
  Serious: Yes (Hospitalization, Other)
  Sender: FDA-Public Use
  Company Number: JP-BAYER-2011-054197

PATIENT
  Age: 63 Year
  Sex: Male
  Weight: 65 kg

DRUGS (11)
  1. ALOSENN [Concomitant]
     Indication: CONSTIPATION
     Dosage: DAILY DOSE 1 G
     Route: 048
  2. CLONAZEPAM [Concomitant]
     Indication: HYPERLIPIDAEMIA
     Dosage: DAILY DOSE .5 G
     Route: 048
  3. LOSARTAN POTASSIUM [Concomitant]
     Indication: HYPERTENSION
     Dosage: DAILY DOSE 25 MG
     Route: 048
  4. LASIX [Concomitant]
     Indication: RENAL FAILURE
     Dosage: DAILY DOSE 40 MG
     Route: 048
  5. OMEPRAZOLE [Concomitant]
     Indication: GASTRITIS
     Dosage: DAILY DOSE 10 MG
     Route: 048
  6. ASPIRIN [Suspect]
     Indication: BRAIN STEM INFARCTION
     Dosage: DAILY DOSE 100 MG
     Route: 048
     Dates: start: 20060301, end: 20061121
  7. LASIX [Concomitant]
     Indication: OEDEMA
  8. ALLOPURINOL [Concomitant]
     Indication: HYPERURICAEMIA
     Dosage: DAILY DOSE 100 MG
     Route: 048
  9. CALCIUM CARBONATE [Concomitant]
     Indication: HYPERPARATHYROIDISM SECONDARY
     Dosage: DAILY DOSE 3000 MG
     Route: 048
  10. ALFAROL [Concomitant]
     Indication: HYPERPARATHYROIDISM SECONDARY
     Dosage: DAILY DOSE .25 ?G
     Route: 048
  11. NORVASC [Concomitant]
     Indication: HYPERTENSION
     Dosage: DAILY DOSE 5 MG
     Route: 048

REACTIONS (3)
  - RENAL HAEMORRHAGE [None]
  - HAEMATURIA [None]
  - ABDOMINAL PAIN [None]
